FAERS Safety Report 5157907-X (Version None)
Quarter: 2006Q4

REPORT INFORMATION
  Report Type: 
  Country: None (occurrence: None)
  Receive Date: 20061122
  Receipt Date: 20061122
  Transmission Date: 20070319
  Serious: Yes (Hospitalization)
  Sender: FDA-Public Use
  Company Number: None

PATIENT
  Age: 24 Year
  Sex: Female
  Weight: 108.8633 kg

DRUGS (2)
  1. OPTIRAY 350 [Suspect]
     Indication: COMPUTERISED TOMOGRAM
     Dosage: 100 ML 3.5 ML/SEC IV
     Route: 042
     Dates: start: 20061110
  2. OPTIRAY 350 [Suspect]
     Indication: PULMONARY EMBOLISM
     Dosage: 100 ML 3.5 ML/SEC IV
     Route: 042
     Dates: start: 20061110

REACTIONS (3)
  - DYSPNOEA [None]
  - HEADACHE [None]
  - PRURITUS [None]
